FAERS Safety Report 11963168 (Version 1)
Quarter: 2016Q1

REPORT INFORMATION
  Report Type: Spontaneous
  Country: US (occurrence: None)
  Receive Date: 20160121
  Receipt Date: 20160121
  Transmission Date: 20160526
  Serious: Yes (Other)
  Sender: FDA-Public Use
  Company Number: None

PATIENT
  Age: 41 Year
  Sex: Female
  Weight: 61.69 kg

DRUGS (1)
  1. CIPRO [Suspect]
     Active Substance: CIPROFLOXACIN HYDROCHLORIDE
     Indication: URINARY TRACT INFECTION
     Dosage: 1 PILL TWICE DAILY TAKEN BY MOUTH
     Dates: start: 20151217, end: 20151223

REACTIONS (5)
  - Nervousness [None]
  - Paraesthesia [None]
  - Panic attack [None]
  - Depression [None]
  - Tremor [None]

NARRATIVE: CASE EVENT DATE: 20151229
